FAERS Safety Report 7402852-X (Version None)
Quarter: 2011Q2

REPORT INFORMATION
  Report Type: 
  Country: None (occurrence: None)
  Receive Date: 20110401
  Receipt Date: 20110322
  Transmission Date: 20111010
  Serious: Yes (Other)
  Sender: FDA-Public Use
  Company Number: TRP_06638_2009

PATIENT
  Sex: Female
  Weight: 98.4306 kg

DRUGS (5)
  1. NEUPOGEN [Suspect]
     Indication: WHITE BLOOD CELL COUNT DECREASED
     Dosage: 1 DF
     Dates: start: 20091123
  2. RIBASPHERE [Suspect]
     Indication: HEPATITIS C
     Dosage: 1200 MG ORAL, 1000 MG, 800 MG QD, DF
     Dates: start: 20091106
  3. PROCRIT [Suspect]
     Indication: ANAEMIA
     Dosage: 1 DF 1X/WEEK SUBCUTANEOUS
     Route: 058
     Dates: start: 20100418, end: 20101001
  4. PEGASYS [Suspect]
     Indication: HEPATITIS C
     Dosage: 180 UG 1X/WEEK SUBCUTANEOUS, 135 UG, 180 UG 1X/WEEK
     Route: 058
     Dates: start: 20091106
  5. ARANESP [Suspect]
     Indication: ANAEMIA
     Dosage: 200 UG 1X/WEEK
     Dates: start: 20101001

REACTIONS (11)
  - NAUSEA [None]
  - PRODUCT CONTAMINATION PHYSICAL [None]
  - DRUG INEFFECTIVE [None]
  - PANCYTOPENIA [None]
  - PRODUCT QUALITY ISSUE [None]
  - RASH [None]
  - PAIN [None]
  - BACK PAIN [None]
  - DIZZINESS POSTURAL [None]
  - WEIGHT DECREASED [None]
  - ALOPECIA [None]
